FAERS Safety Report 5806092-7 (Version None)
Quarter: 2008Q3

REPORT INFORMATION
  Report Type: 
  Country: None (occurrence: None)
  Receive Date: 20080710
  Receipt Date: 20080707
  Transmission Date: 20090109
  Serious: Yes (Other)
  Sender: FDA-Public Use
  Company Number: GB-WYE-G01826008

PATIENT
  Age: 41 Year
  Sex: Female
  Weight: 74 kg

DRUGS (3)
  1. VENLAFAXINE HYDROCHLORIDE [Suspect]
     Indication: DEPRESSION
     Dosage: 75 MG (FREQUENCY UNKNOWN)
     Route: 048
     Dates: start: 20080401
  2. CERAZETTE [Concomitant]
     Indication: CONTRACEPTION
     Route: 048
     Dates: start: 20070101, end: 20070301
  3. FLUOXETINE [Suspect]
     Indication: DEPRESSION
     Dosage: 40 MG (FREQUENCY UNKNOWN)
     Route: 048
     Dates: start: 20080201, end: 20080401

REACTIONS (3)
  - BLOOD FOLLICLE STIMULATING HORMONE INCREASED [None]
  - OESTRADIOL DECREASED [None]
  - PREMATURE MENOPAUSE [None]
